FAERS Safety Report 17195650 (Version 1)
Quarter: 2019Q4

REPORT INFORMATION
  Report Type: Spontaneous
  Country: US (occurrence: US)
  Receive Date: 20191202
  Receipt Date: 20191202
  Transmission Date: 20200122
  Serious: Yes (Disabling)
  Sender: FDA-Public Use
  Company Number: None

PATIENT
  Age: 65 Year
  Sex: Female
  Weight: 63.05 kg

DRUGS (7)
  1. METAPROLOL [Concomitant]
     Active Substance: METOPROLOL
  2. VIT B [Concomitant]
     Active Substance: VITAMIN B
  3. MIRTAZAPINE. [Suspect]
     Active Substance: MIRTAZAPINE
     Indication: ANXIETY
     Dosage: ?          QUANTITY:7.3MG WK1 ^15/4 WK;?
     Route: 048
     Dates: start: 20190523, end: 20190729
  4. FISH OIL [Concomitant]
     Active Substance: FISH OIL
  5. MIRTAZAPINE. [Suspect]
     Active Substance: MIRTAZAPINE
     Indication: INSOMNIA
     Dosage: ?          QUANTITY:7.3MG WK1 ^15/4 WK;?
     Route: 048
     Dates: start: 20190523, end: 20190729
  6. VIT D [Concomitant]
     Active Substance: VITAMIN D NOS
  7. DAILY VITAMIN [Concomitant]
     Active Substance: VITAMINS

REACTIONS (5)
  - Persistent genital arousal disorder [None]
  - Insomnia [None]
  - Aphasia [None]
  - Loss of libido [None]
  - Priapism [None]

NARRATIVE: CASE EVENT DATE: 20190806
